FAERS Safety Report 5757942-4 (Version None)
Quarter: 2008Q2

REPORT INFORMATION
  Report Type: 
  Country: None (occurrence: None)
  Receive Date: 20080602
  Receipt Date: 20080602
  Transmission Date: 20081010
  Serious: Yes (Other)
  Sender: FDA-Public Use
  Company Number: None

PATIENT
  Age: 68 Year
  Sex: Female
  Weight: 70.3075 kg

DRUGS (1)
  1. CYMBALTA [Suspect]
     Indication: DEPRESSION
     Dosage: ONE CAPSULE ONCE A DAY
     Dates: start: 20080127, end: 20080411

REACTIONS (10)
  - FIBROMYALGIA [None]
  - HYPERHIDROSIS [None]
  - HYPOAESTHESIA [None]
  - MUSCULAR WEAKNESS [None]
  - MYALGIA [None]
  - NEUROPATHY PERIPHERAL [None]
  - PAIN [None]
  - PARAESTHESIA [None]
  - SPINAL DISORDER [None]
  - STRESS [None]
